FAERS Safety Report 6956787 (Version 5)
Quarter: 2014Q1

REPORT INFORMATION
  Report Type: Other
  Country: FR (occurrence: FR)
  Receive Date: 20090331
  Receipt Date: 20140228
  Transmission Date: 20141002
  Serious: Yes (Hospitalization, Other)
  Sender: FDA-Public Use
  Company Number: FR-RB-013045-09

PATIENT
  Age: 34 Year
  Sex: Male

DRUGS (2)
  1. SUBUTEX [Suspect]
     Indication: POLYSUBSTANCE DEPENDENCE
     Dosage: DOSING INFORMATION UNKNOWN.
     Route: 060
  2. SUBUTEX [Suspect]
     Dosage: DOSING INFORMATION UNKNOWN.
     Route: 058

REACTIONS (4)
  - Penile necrosis [Recovered/Resolved]
  - Enterococcal sepsis [Unknown]
  - Ischaemia [Recovered/Resolved]
  - Intentional drug misuse [Unknown]
